FAERS Safety Report 21586484 (Version 2)
Quarter: 2022Q4

REPORT INFORMATION
  Report Type: Report from Study
  Country: US (occurrence: US)
  Receive Date: 20221112
  Receipt Date: 20221212
  Transmission Date: 20230113
  Serious: Yes (Other)
  Sender: FDA-Public Use
  Company Number: US-TAKEDA-US202016346

PATIENT
  Age: 74 Year
  Sex: Female
  Weight: 68 kg

DRUGS (35)
  1. HUMAN IMMUNOGLOBULIN G\HYALURONIDASE RECOMBINANT HUMAN [Suspect]
     Active Substance: HUMAN IMMUNOGLOBULIN G\HYALURONIDASE RECOMBINANT HUMAN
     Indication: Primary immunodeficiency syndrome
     Dosage: 20 GRAM, Q4WEEKS
     Route: 058
     Dates: start: 20190715
  2. CUVITRU [Suspect]
     Active Substance: HUMAN IMMUNOGLOBULIN G
     Indication: Immunodeficiency common variable
     Dosage: 20 GRAM, Q2WEEKS
     Route: 058
     Dates: start: 20170526
  3. DIPHENHYDRAMINE [Concomitant]
     Active Substance: DIPHENHYDRAMINE
  4. EPINEPHRINE [Concomitant]
     Active Substance: EPINEPHRINE
  5. SYNTHROID [Concomitant]
     Active Substance: LEVOTHYROXINE SODIUM
  6. COLESEVELAM HYDROCHLORIDE [Concomitant]
     Active Substance: COLESEVELAM HYDROCHLORIDE
  7. COENZYME Q10 [Concomitant]
     Active Substance: DIETARY SUPPLEMENT\UBIDECARENONE
  8. ACETAMINOPHEN [Concomitant]
     Active Substance: ACETAMINOPHEN
  9. MINERALS\VITAMINS [Concomitant]
     Active Substance: MINERALS\VITAMINS
  10. RIBOFLAVIN [Concomitant]
     Active Substance: RIBOFLAVIN
  11. CITRUCEL [Concomitant]
     Active Substance: METHYLCELLULOSE (4000 MPA.S)
  12. LIDOCAINE [Concomitant]
     Active Substance: LIDOCAINE
  13. ENTOCORT EC [Concomitant]
     Active Substance: BUDESONIDE
  14. TRAMADOL HCL [Concomitant]
     Active Substance: TRAMADOL HYDROCHLORIDE
  15. ASPIRIN [Concomitant]
     Active Substance: ASPIRIN
  16. RITUXAN [Concomitant]
     Active Substance: RITUXIMAB
  17. ALLEGRA ALLERGY [Concomitant]
     Active Substance: FEXOFENADINE HYDROCHLORIDE
  18. LEVOCETIRIZINE DIHYDROCHLORIDE [Concomitant]
     Active Substance: LEVOCETIRIZINE DIHYDROCHLORIDE
  19. CLONAZEPAM [Concomitant]
     Active Substance: CLONAZEPAM
  20. CIPROFLOXACIN HYDROCHLORIDE [Concomitant]
     Active Substance: CIPROFLOXACIN HYDROCHLORIDE
  21. SODIUM CHLORIDE [Concomitant]
     Active Substance: SODIUM CHLORIDE
  22. VITAMIN D [Concomitant]
     Active Substance: VITAMIN D NOS
  23. FOLIC ACID [Concomitant]
     Active Substance: FOLIC ACID
  24. GABAPENTIN [Concomitant]
     Active Substance: GABAPENTIN
  25. ZOLPIDEM TARTRATE [Concomitant]
     Active Substance: ZOLPIDEM TARTRATE
  26. RESTASIS [Concomitant]
     Active Substance: CYCLOSPORINE
  27. EPIPEN [Concomitant]
     Active Substance: EPINEPHRINE
  28. BELSOMRA [Concomitant]
     Active Substance: SUVOREXANT
  29. MYRBETRIQ [Concomitant]
     Active Substance: MIRABEGRON
  30. CLINDAMYCIN HYDROCHLORIDE [Concomitant]
     Active Substance: CLINDAMYCIN HYDROCHLORIDE
  31. PRAMOSONE [Concomitant]
     Active Substance: HYDROCORTISONE ACETATE\PRAMOXINE HYDROCHLORIDE
  32. NIFEDIPINE [Concomitant]
     Active Substance: NIFEDIPINE
  33. Lmx [Concomitant]
  34. EVOXAC [Concomitant]
     Active Substance: CEVIMELINE HYDROCHLORIDE
  35. PANTOPRAZOLE [Concomitant]
     Active Substance: PANTOPRAZOLE

REACTIONS (6)
  - Hip arthroplasty [Unknown]
  - Nausea [Unknown]
  - Malaise [Unknown]
  - Infusion site erythema [Unknown]
  - Infusion site pruritus [Unknown]
  - Urinary tract infection [Unknown]

NARRATIVE: CASE EVENT DATE: 20210128
